FAERS Safety Report 25641206 (Version 1)
Quarter: 2025Q3

REPORT INFORMATION
  Report Type: Spontaneous
  Country: US (occurrence: US)
  Receive Date: 20250804
  Receipt Date: 20250804
  Transmission Date: 20251021
  Serious: No
  Sender: SANOFI AVENTIS
  Company Number: US-SA-2025SA225244

PATIENT
  Age: 19 Year
  Sex: Male

DRUGS (1)
  1. DUPIXENT [Suspect]
     Active Substance: DUPILUMAB
     Indication: Dermatitis atopic
     Route: 058
     Dates: start: 20250724, end: 20250724

REACTIONS (6)
  - Dry skin [Unknown]
  - Skin haemorrhage [Unknown]
  - Skin fissures [Unknown]
  - Myalgia [Unknown]
  - Arthralgia [Unknown]
  - Rash [Unknown]

NARRATIVE: CASE EVENT DATE: 20250701
